FAERS Safety Report 9670392 (Version 2)
Quarter: 2013Q4

REPORT INFORMATION
  Report Type: Report from Study
  Country: KR (occurrence: KR)
  Receive Date: 20131105
  Receipt Date: 20131128
  Transmission Date: 20140711
  Serious: Yes (Death, Other)
  Sender: FDA-Public Use
  Company Number: KR-009507513-1311KOR000711

PATIENT
  Age: 72 Year
  Sex: Female
  Weight: 63.3 kg

DRUGS (14)
  1. DEXAMETHASONE [Suspect]
     Indication: PLASMA CELL MYELOMA
     Dosage: 20MG ORALLY ON DAYS ONE, TWO, FOUR, FIVE, 8, 9, 11,12 EVERY 21 DAYS
     Route: 048
     Dates: start: 20130409, end: 20130927
  2. STUDY DRUG (UNSPECIFIED) [Suspect]
     Indication: PLASMA CELL MYELOMA
     Dosage: UNK
     Route: 058
     Dates: start: 20130409, end: 20130927
  3. BORTEZOMIB [Suspect]
     Indication: PLASMA CELL MYELOMA
     Dosage: 1.3MG/M2 SUBCUTANEOUSLY ON DAYS ONE, FOUR, EIGHT AND 11 EVERY 21 DAYS
     Route: 058
     Dates: start: 20130409, end: 20131004
  4. BORTEZOMIB [Suspect]
     Dosage: 1.3MG/M2 SUBCUTANEOUSLY ON DAYS ONE, FOUR, EIGHT AND 11 EVERY 21 DAYS
     Route: 058
     Dates: start: 20130625
  5. BORTEZOMIB [Suspect]
     Dosage: 1.3MG/M2 SUBCUTANEOUSLY ON DAYS ONE, FOUR, EIGHT AND 11 EVERY 21 DAYS
     Route: 058
     Dates: start: 20130702
  6. HYALURONATE SODIUM [Concomitant]
     Indication: BLEPHARITIS
     Dosage: UNK
     Dates: start: 20130619, end: 20131017
  7. OFLOXACIN [Concomitant]
     Indication: BLEPHARITIS
     Dosage: UNK
     Dates: start: 20120702, end: 20131017
  8. CALCIUM (UNSPECIFIED) (+) VITAMIN D (UNSPECIFIED) [Concomitant]
     Indication: PROPHYLAXIS
     Dosage: UNK
     Dates: start: 20130604, end: 20131017
  9. RANITIDINE [Concomitant]
     Indication: PROPHYLAXIS
     Dosage: UNK
     Dates: start: 20130604, end: 20131017
  10. PRAVASTATIN SODIUM [Concomitant]
     Indication: BLOOD CHOLESTEROL INCREASED
     Dosage: UNK
     Dates: start: 20130813, end: 20131017
  11. HYDROCHLOROTHIAZIDE (+) IRBESARTAN [Concomitant]
     Indication: HYPERTENSION
     Dosage: UNK
     Dates: start: 20130731, end: 20131017
  12. ACETAMINOPHEN (+) CODEINE PHOSPHATE (+) IBUPROFEN [Concomitant]
     Indication: NEURALGIA
     Dosage: UNK
     Dates: end: 20131017
  13. GABAPENTIN [Concomitant]
     Indication: BACK PAIN
     Dosage: UNK
     Dates: start: 20130602, end: 20131017
  14. INFLUENZA VIRUS VACCINE [Concomitant]
     Indication: ANTIVIRAL PROPHYLAXIS
     Route: 030
     Dates: start: 20131015, end: 20131015

REACTIONS (1)
  - Sepsis [Fatal]
